FAERS Safety Report 8247695-2 (Version None)
Quarter: 2012Q1

REPORT INFORMATION
  Report Type: 
  Country: None (occurrence: None)
  Receive Date: 20120330
  Receipt Date: 20120322
  Transmission Date: 20120608
  Serious: Yes (Hospitalization)
  Sender: FDA-Public Use
  Company Number: US-GLAXOSMITHKLINE-A0789243A

PATIENT
  Age: 46 Year
  Sex: Male
  Weight: 79.1 kg

DRUGS (2)
  1. AVANDIA [Suspect]
     Indication: DIABETES MELLITUS
     Dosage: 8MG TWICE PER DAY
     Route: 048
     Dates: start: 20040101, end: 20070401
  2. METAGLIP [Concomitant]

REACTIONS (3)
  - TRANSIENT ISCHAEMIC ATTACK [None]
  - HEART RATE IRREGULAR [None]
  - CEREBROVASCULAR ACCIDENT [None]
